FAERS Safety Report 24332937 (Version 1)
Quarter: 2024Q3

REPORT INFORMATION
  Report Type: Spontaneous
  Country: FR (occurrence: FR)
  Receive Date: 20240918
  Receipt Date: 20240918
  Transmission Date: 20241016
  Serious: Yes (Life-Threatening)
  Sender: pharmaAND
  Company Number: FR-AFSSAPS-BS2024000600

PATIENT
  Age: 51 Year
  Sex: Female
  Weight: 61 kg

DRUGS (1)
  1. PEGASYS [Suspect]
     Active Substance: PEGINTERFERON ALFA-2A
     Indication: Polycythaemia vera
     Dosage: 2016 ? 2019 : 65 ?G2019 ? 05/21 : 90 ?G 05/21 ? 03/22 : 133 ?G 03/22 ? 01/23 : 90 ?G
     Route: 058
     Dates: start: 2016, end: 20230120

REACTIONS (1)
  - Dilated cardiomyopathy [Recovering/Resolving]

NARRATIVE: CASE EVENT DATE: 20230120
